FAERS Safety Report 9805456 (Version 1)
Quarter: 2014Q1

REPORT INFORMATION
  Report Type: Spontaneous
  Country: CN (occurrence: CN)
  Receive Date: 20140109
  Receipt Date: 20140109
  Transmission Date: 20141002
  Serious: Yes (Other)
  Sender: FDA-Public Use
  Company Number: CN-JNJFOC-20140100009

PATIENT
  Age: 62 Year
  Sex: Male

DRUGS (5)
  1. RISPERIDONE [Suspect]
     Indication: BIPOLAR II DISORDER
     Dosage: WAS STARTED ON DAY 11.
     Route: 065
  2. LAMOTRIGINE [Suspect]
     Indication: BIPOLAR II DISORDER
     Dosage: OVER 2 WEEKS
     Route: 065
  3. LAMOTRIGINE [Suspect]
     Indication: BIPOLAR II DISORDER
     Route: 065
  4. BUPROPION [Interacting]
     Indication: BIPOLAR II DISORDER
     Dosage: OVER 2 WEEK
     Route: 065
  5. BUPROPION [Interacting]
     Indication: BIPOLAR II DISORDER
     Route: 065

REACTIONS (4)
  - Delirium [Recovered/Resolved]
  - Drug interaction [Unknown]
  - Depression [Recovered/Resolved]
  - Off label use [Unknown]
